FAERS Safety Report 7288165-8 (Version None)
Quarter: 2011Q1

REPORT INFORMATION
  Report Type: 
  Country: None (occurrence: None)
  Receive Date: 20110211
  Receipt Date: 20110203
  Transmission Date: 20110831
  Serious: Yes (Other)
  Sender: FDA-Public Use
  Company Number: US-GENZYME-POMP-1001318

PATIENT
  Sex: Female
  Weight: 122 kg

DRUGS (3)
  1. IBUPROFEN [Concomitant]
     Indication: PREMEDICATION
  2. LUMIZYME [Suspect]
     Indication: GLYCOGEN STORAGE DISEASE TYPE II
     Dosage: 20 MG/KG, QOW
     Route: 042
     Dates: start: 20101111
  3. STEROIDS [Concomitant]
     Indication: PREMEDICATION

REACTIONS (3)
  - INFLUENZA LIKE ILLNESS [None]
  - FATIGUE [None]
  - ARTHRALGIA [None]
